FAERS Safety Report 15262255 (Version 1)
Quarter: 2018Q3

REPORT INFORMATION
  Report Type: Spontaneous
  Country: US (occurrence: US)
  Receive Date: 20180720
  Receipt Date: 20180720
  Transmission Date: 20181010
  Serious: No
  Sender: FDA-Public Use
  Company Number: None

PATIENT
  Age: 25 Year
  Sex: Female
  Weight: 49.44 kg

DRUGS (1)
  1. IUD NOS [Suspect]
     Active Substance: COPPER OR LEVONORGESTREL

REACTIONS (12)
  - Impaired work ability [None]
  - Pain [None]
  - Dyspareunia [None]
  - Suicidal ideation [None]
  - Weight decreased [None]
  - Acne cystic [None]
  - Depression [None]
  - Anxiety [None]
  - Mood swings [None]
  - Decreased appetite [None]
  - Loss of libido [None]
  - Headache [None]

NARRATIVE: CASE EVENT DATE: 20171101
